FAERS Safety Report 9149521 (Version 1)
Quarter: 2013Q1

REPORT INFORMATION
  Report Type: Spontaneous
  Country: US (occurrence: None)
  Receive Date: 20130301
  Receipt Date: 20130301
  Transmission Date: 20140127
  Serious: Yes (Other)
  Sender: FDA-Public Use
  Company Number: None

PATIENT
  Age: 24 Year
  Sex: Female
  Weight: 58.97 kg

DRUGS (1)
  1. TOPIRAMATE [Suspect]
     Indication: BIPOLAR DISORDER
     Dosage: 25 MG  ONCE DAILY  PO
     Route: 048
     Dates: start: 20130214, end: 20130219

REACTIONS (3)
  - Heart rate increased [None]
  - Anxiety [None]
  - Agitation [None]
